FAERS Safety Report 17231980 (Version 14)
Quarter: 2021Q3

REPORT INFORMATION
  Report Type: Report from Study
  Country: US (occurrence: US)
  Receive Date: 20200103
  Receipt Date: 20210817
  Transmission Date: 20211014
  Serious: Yes (Hospitalization, Other)
  Sender: FDA-Public Use
  Company Number: US-GLAXOSMITHKLINE-US2019TSO170527

PATIENT
  Age: 42 Year
  Sex: Female

DRUGS (13)
  1. NIRAPARIB [Suspect]
     Active Substance: NIRAPARIB
     Dosage: 100 MG, QD
     Route: 048
  2. NIRAPARIB [Suspect]
     Active Substance: NIRAPARIB
     Dosage: 100 MG, QD
     Route: 048
  3. NIRAPARIB [Suspect]
     Active Substance: NIRAPARIB
     Dosage: 100 MG, QD
     Route: 048
  4. NIRAPARIB [Suspect]
     Active Substance: NIRAPARIB
     Dosage: 100 MG DAILY IN THE EVENING WITH FOOD
     Route: 048
  5. NIRAPARIB [Suspect]
     Active Substance: NIRAPARIB
     Dosage: 100 MG, QD
  6. NIRAPARIB [Suspect]
     Active Substance: NIRAPARIB
     Dosage: 300 MG, QD
     Route: 048
     Dates: end: 20191227
  7. CIPROFLOXACIN. [Suspect]
     Active Substance: CIPROFLOXACIN
     Indication: INFECTION
     Dosage: UNK
  8. NIRAPARIB [Suspect]
     Active Substance: NIRAPARIB
     Dosage: 100 MG, QD
  9. NIRAPARIB [Suspect]
     Active Substance: NIRAPARIB
     Dosage: 100 MG, QD
     Route: 048
  10. NIRAPARIB [Suspect]
     Active Substance: NIRAPARIB
     Dosage: 100 MG, QD
     Route: 048
     Dates: start: 20190909
  11. NIRAPARIB [Suspect]
     Active Substance: NIRAPARIB
     Dosage: 100 MG, QD (IN THE EVENING WITH FOOD)
  12. NIRAPARIB [Suspect]
     Active Substance: NIRAPARIB
     Dosage: 100 MG, QPM
  13. NIRAPARIB [Suspect]
     Active Substance: NIRAPARIB
     Indication: OVARIAN CANCER
     Dosage: 200 MG, QD
     Route: 048
     Dates: start: 20190910, end: 20190924

REACTIONS (32)
  - Lower respiratory tract infection [Unknown]
  - Cough [Unknown]
  - Atypical mycobacterial infection [Unknown]
  - Gastrooesophageal reflux disease [Unknown]
  - Lung disorder [Unknown]
  - Headache [Not Recovered/Not Resolved]
  - Hepatic enzyme increased [Unknown]
  - Ill-defined disorder [Unknown]
  - Insomnia [Recovering/Resolving]
  - Red blood cell count decreased [Unknown]
  - Diarrhoea [Unknown]
  - Blood sodium decreased [Unknown]
  - Product dose omission issue [Unknown]
  - Motion sickness [Unknown]
  - Fatigue [Unknown]
  - Platelet count decreased [Not Recovered/Not Resolved]
  - Underdose [Unknown]
  - Mycobacterium avium complex infection [Unknown]
  - Nausea [Recovering/Resolving]
  - Musculoskeletal chest pain [Unknown]
  - Constipation [Not Recovered/Not Resolved]
  - Chest pain [Unknown]
  - Computerised tomogram pelvis abnormal [Unknown]
  - Back pain [Unknown]
  - Laboratory test abnormal [Unknown]
  - Biopsy lung [Unknown]
  - Tachycardia [Unknown]
  - Neutrophil count decreased [Unknown]
  - Gallbladder disorder [Unknown]
  - White blood cell count decreased [Not Recovered/Not Resolved]
  - Abdominal pain [Not Recovered/Not Resolved]
  - Tendonitis [Unknown]

NARRATIVE: CASE EVENT DATE: 201909
